FAERS Safety Report 13838756 (Version 1)
Quarter: 2017Q3

REPORT INFORMATION
  Report Type: Spontaneous
  Country: US (occurrence: US)
  Receive Date: 20170804
  Receipt Date: 20170804
  Transmission Date: 20171127
  Serious: Yes (Other)
  Sender: FDA-Public Use
  Company Number: None

PATIENT
  Age: 50 Year
  Sex: Female
  Weight: 72.64 kg

DRUGS (10)
  1. VITAMIN B [Concomitant]
     Active Substance: VITAMIN B
  2. PROBIOTIC [Concomitant]
     Active Substance: PROBIOTICS NOS
  3. LIVER HEALTH [Concomitant]
  4. ADRENAL HEALTH [Concomitant]
  5. MULTI VITAMIN [Concomitant]
     Active Substance: VITAMINS
  6. VITAMIN E [Concomitant]
     Active Substance: .ALPHA.-TOCOPHEROL
  7. PARAGARD T 380A [Suspect]
     Active Substance: COPPER
  8. VITAMIN E [Concomitant]
     Active Substance: .ALPHA.-TOCOPHEROL
  9. GLUCOSAMINE/CHONDROITIN [Concomitant]
  10. FISH OIL [Concomitant]
     Active Substance: FISH OIL

REACTIONS (2)
  - Procedural complication [None]
  - Device breakage [None]

NARRATIVE: CASE EVENT DATE: 20170803
